FAERS Safety Report 22026861 (Version 1)
Quarter: 2023Q1

REPORT INFORMATION
  Report Type: Report from Study
  Country: DE (occurrence: DE)
  Receive Date: 20230223
  Receipt Date: 20230223
  Transmission Date: 20230417
  Serious: Yes (Other)
  Sender: FDA-Public Use
  Company Number: DE-ABBVIE-4314390

PATIENT
  Age: 61 Year
  Sex: Female

DRUGS (1)
  1. RINVOQ [Suspect]
     Active Substance: UPADACITINIB
     Indication: Rheumatoid arthritis
     Route: 048
     Dates: start: 2020

REACTIONS (7)
  - Gastric cyst [Not Recovered/Not Resolved]
  - Gait disturbance [Recovering/Resolving]
  - Abdominal pain upper [Unknown]
  - Blood glucose increased [Not Recovered/Not Resolved]
  - Arthropathy [Recovering/Resolving]
  - Hepatic function abnormal [Not Recovered/Not Resolved]
  - Peripheral swelling [Recovering/Resolving]

NARRATIVE: CASE EVENT DATE: 20220801
